FAERS Safety Report 10697554 (Version 2)
Quarter: 2015Q1

REPORT INFORMATION
  Report Type: Spontaneous
  Country: FR (occurrence: FR)
  Receive Date: 20150108
  Receipt Date: 20150126
  Transmission Date: 20150721
  Serious: Yes (Life-Threatening, Hospitalization)
  Sender: FDA-Public Use
  Company Number: FR-PFIZER INC-2015002412

PATIENT
  Age: 65 Year
  Sex: Male

DRUGS (8)
  1. ADRIBLASTINE [Suspect]
     Active Substance: DOXORUBICIN
     Indication: HODGKIN^S DISEASE STAGE IV
     Dosage: UNK, SINGLE
     Route: 041
     Dates: start: 20141217
  2. BLEOMYCIN [Suspect]
     Active Substance: BLEOMYCIN SULFATE
     Indication: HODGKIN^S DISEASE STAGE IV
     Dosage: UNK, SINGLE
     Route: 041
     Dates: start: 20141217
  3. DACARBAZINE. [Suspect]
     Active Substance: DACARBAZINE
     Indication: HODGKIN^S DISEASE STAGE IV
     Dosage: UNK, SINGLE
     Route: 041
     Dates: start: 20141217
  4. SOLU-MEDROL [Concomitant]
     Active Substance: METHYLPREDNISOLONE SODIUM SUCCINATE
  5. EMEND [Concomitant]
     Active Substance: APREPITANT
  6. VELBE [Suspect]
     Active Substance: VINBLASTINE SULFATE
     Indication: HODGKIN^S DISEASE STAGE IV
     Dosage: UNK, SINGLE
     Route: 041
     Dates: start: 20141217
  7. ONDANSETRON [Concomitant]
     Active Substance: ONDANSETRON
  8. EXFORGE [Concomitant]
     Active Substance: AMLODIPINE BESYLATE\VALSARTAN

REACTIONS (1)
  - Status epilepticus [Recovered/Resolved]

NARRATIVE: CASE EVENT DATE: 20141218
